FAERS Safety Report 9771086 (Version 3)
Quarter: 2014Q1

REPORT INFORMATION
  Report Type: Spontaneous
  Country: US (occurrence: US)
  Receive Date: 20131218
  Receipt Date: 20140304
  Transmission Date: 20141002
  Serious: Yes (Hospitalization)
  Sender: FDA-Public Use
  Company Number: US-PFIZER INC-2013361371

PATIENT
  Age: 75 Year
  Sex: Female
  Weight: 53.02 kg

DRUGS (6)
  1. LYRICA [Suspect]
     Indication: SCIATICA
     Dosage: 100 MG, 3X/DAY
     Route: 048
  2. HCTZ [Concomitant]
     Dosage: 12.5 MG, UNK
  3. LORTAB [Concomitant]
     Dosage: UNK
  4. TIAZAC [Concomitant]
     Dosage: UNK
  5. ZOLOFT [Concomitant]
     Dosage: UNK
  6. LISINOPRIL [Concomitant]
     Dosage: UNK

REACTIONS (2)
  - Fall [Unknown]
  - Upper limb fracture [Unknown]
